FAERS Safety Report 10691929 (Version 1)
Quarter: 2015Q1

REPORT INFORMATION
  Report Type: Spontaneous
  Country: CH (occurrence: CH)
  Receive Date: 20150105
  Receipt Date: 20150105
  Transmission Date: 20150720
  Serious: Yes (Hospitalization)
  Sender: FDA-Public Use
  Company Number: CH-TEVA-531705ISR

PATIENT
  Age: 76 Year
  Sex: Male

DRUGS (2)
  1. AMIODARON-MEPHA [Suspect]
     Active Substance: AMIODARONE
     Dosage: PATIENT WAS TREATED FOR ABOUT 2 YEARS WITH AMIODARONE-MEPHA
     Route: 065
  2. CORDARONE [Suspect]
     Active Substance: AMIODARONE HYDROCHLORIDE
     Dosage: CORDARONE WAS ADMINISTERED PRIOR TO TREATMENT WITH AMIODARON-MEPHA
     Route: 065

REACTIONS (11)
  - Decreased appetite [Recovering/Resolving]
  - Haematochezia [Recovered/Resolved]
  - Listless [Unknown]
  - Weight decreased [Unknown]
  - Blood urine present [Recovered/Resolved]
  - Parathyroid disorder [Unknown]
  - Coagulation test abnormal [Unknown]
  - Myalgia [Unknown]
  - Cholelithiasis [Unknown]
  - Liver function test abnormal [Unknown]
  - Withdrawal syndrome [Unknown]

NARRATIVE: CASE EVENT DATE: 2014
